FAERS Safety Report 6322475-3 (Version None)
Quarter: 2009Q3

REPORT INFORMATION
  Report Type: 
  Country: None (occurrence: None)
  Receive Date: 20090824
  Receipt Date: 20090223
  Transmission Date: 20100115
  Serious: No
  Sender: FDA-Public Use
  Company Number: US-ABBOTT-09P-163-0559187-00

PATIENT
  Sex: Male
  Weight: 98.064 kg

DRUGS (10)
  1. NIASPAN [Suspect]
     Indication: HIGH DENSITY LIPOPROTEIN DECREASED
     Dosage: 500MG DAILY AT BEDTIME
     Route: 048
     Dates: start: 20090131
  2. FLOMAX [Concomitant]
     Indication: PROSTATOMEGALY
  3. HYDROCHLORIDE [Concomitant]
     Indication: DRUG USE FOR UNKNOWN INDICATION
  4. AVODART [Concomitant]
     Indication: PROSTATOMEGALY
     Route: 048
  5. ALLOPURINOL [Concomitant]
     Indication: NEPHROLITHIASIS
     Route: 048
  6. CADUET [Concomitant]
     Indication: CARDIAC DISORDER
     Dosage: 5 /40MG DAILY
     Route: 048
  7. FISH OIL [Concomitant]
     Indication: MEDICAL DIET
     Route: 048
  8. UROCIT-K [Concomitant]
     Indication: PROPHYLAXIS
  9. UROCIT-K [Concomitant]
     Indication: NEPHROLITHIASIS
  10. ASPIRIN [Concomitant]
     Indication: PROPHYLAXIS
     Dosage: 162 MG DAILY AT BEDTIME
     Route: 048

REACTIONS (3)
  - FEELING HOT [None]
  - PARAESTHESIA [None]
  - PRURITUS [None]
